FAERS Safety Report 14421056 (Version 1)
Quarter: 2018Q1

REPORT INFORMATION
  Report Type: Spontaneous
  Country: JP (occurrence: JP)
  Receive Date: 20180122
  Receipt Date: 20180122
  Transmission Date: 20180509
  Serious: Yes (Life-Threatening, Disabling, Other)
  Sender: FDA-Public Use
  Company Number: JP-GE HEALTHCARE LIFE SCIENCES-OMPQ-NO-0903S-0224

PATIENT

DRUGS (3)
  1. SOLITA-T1 [Concomitant]
     Dosage: UNK
     Dates: start: 20090322, end: 20090322
  2. OMNIPAQUE [Suspect]
     Active Substance: IOHEXOL
     Indication: HEPATIC FUNCTION ABNORMAL
     Dosage: UNK, SINGLE
     Route: 041
     Dates: start: 20090322, end: 20090322
  3. VEEN-F [Concomitant]
     Active Substance: CALCIUM CHLORIDE\MAGNESIUM CHLORIDE\POTASSIUM CHLORIDE\SODIUM ACETATE\SODIUM CHLORIDE

REACTIONS (3)
  - Hypoxic-ischaemic encephalopathy [Unknown]
  - Anaphylactoid shock [Unknown]
  - Nervous system disorder [Unknown]

NARRATIVE: CASE EVENT DATE: 20090322
